FAERS Safety Report 19645362 (Version 1)
Quarter: 2021Q3

REPORT INFORMATION
  Report Type: Spontaneous
  Country: GB (occurrence: GB)
  Receive Date: 20210801
  Receipt Date: 20210801
  Transmission Date: 20211014
  Serious: No
  Sender: FDA-Public Use
  Company Number: None

PATIENT
  Age: 33 Month
  Sex: Female
  Weight: 11.25 kg

DRUGS (1)
  1. ORAJEL DENTAL GEL UNITED KINGDOM [BENZOCAINE] [Suspect]
     Active Substance: BENZOCAINE
     Indication: TEETHING
     Dosage: ?          OTHER ROUTE:RUBBED ONTO GUM?
     Dates: start: 20210801, end: 20210801

REACTIONS (1)
  - Vomiting [None]

NARRATIVE: CASE EVENT DATE: 20210801
